FAERS Safety Report 5428124-0 (Version None)
Quarter: 2007Q3

REPORT INFORMATION
  Report Type: 
  Country: None (occurrence: None)
  Receive Date: 20070828
  Receipt Date: 20070824
  Transmission Date: 20080115
  Serious: No
  Sender: FDA-Public Use
  Company Number: US-BOEHRINGER INGELHEIM PHARMACEUTICALS, INC.-2007-BP-17709BP

PATIENT
  Age: 74 Year
  Sex: Female

DRUGS (9)
  1. SPIRIVA [Suspect]
     Indication: EMPHYSEMA
     Route: 055
     Dates: start: 20070101
  2. TOPROL-XL [Concomitant]
  3. NORVASC [Concomitant]
  4. ISORDIL [Concomitant]
  5. LIPITOR [Concomitant]
  6. ZIETA [Concomitant]
  7. COLCHICINE [Concomitant]
  8. ASPIRIN [Concomitant]
  9. MOBIC [Concomitant]

REACTIONS (5)
  - DRY MOUTH [None]
  - ORAL INFECTION [None]
  - PHARYNGITIS [None]
  - UPPER RESPIRATORY FUNGAL INFECTION [None]
  - URINARY RETENTION [None]
